FAERS Safety Report 6669131-X (Version None)
Quarter: 2010Q2

REPORT INFORMATION
  Report Type: 
  Country: None (occurrence: None)
  Receive Date: 20100406
  Receipt Date: 20100330
  Transmission Date: 20101027
  Serious: Yes (Death, Hospitalization)
  Sender: FDA-Public Use
  Company Number: JP-BAYER-200915276BYL

PATIENT
  Age: 62 Year
  Sex: Female
  Weight: 58 kg

DRUGS (9)
  1. NEXAVAR [Suspect]
     Indication: HEPATIC NEOPLASM MALIGNANT
     Dosage: AS USED: 400 MG  UNIT DOSE: 200 MG
     Route: 048
     Dates: start: 20090824, end: 20090907
  2. URSO 250 [Concomitant]
     Dosage: SINCE BEFORE ADMINISTRATION
     Route: 048
  3. MONILAC [Concomitant]
     Dosage: UNIT DOSE: 65 %
     Route: 048
  4. LIVACT [Concomitant]
     Dosage: SINCE BEFORE ADMINISTRATION
     Route: 048
  5. ALDACTONE [Concomitant]
     Dosage: SINCE BEFORE ADMINISTRATION
     Route: 048
  6. LASIX [Concomitant]
     Indication: ABDOMINAL DISTENSION
     Route: 042
     Dates: start: 20091030, end: 20091101
  7. LASIX [Concomitant]
     Dosage: SINCE BEFORE ADMINISTRATION
     Route: 048
  8. FAMOTIDINE [Concomitant]
     Indication: GASTRITIS PROPHYLAXIS
     Dosage: SINCE BEFORE ADMINISTRATION
     Route: 048
  9. ALBUMIN (HUMAN) [Concomitant]
     Indication: OEDEMA PERIPHERAL
     Dosage: UNIT DOSE: 25 %
     Route: 042
     Dates: start: 20091030, end: 20091101

REACTIONS (6)
  - ABDOMINAL DISTENSION [None]
  - HEPATIC FUNCTION ABNORMAL [None]
  - HEPATIC NEOPLASM MALIGNANT [None]
  - MALAISE [None]
  - OEDEMA PERIPHERAL [None]
  - PALMAR-PLANTAR ERYTHRODYSAESTHESIA SYNDROME [None]
